FAERS Safety Report 6094770-7 (Version None)
Quarter: 2009Q1

REPORT INFORMATION
  Report Type: 
  Country: None (occurrence: None)
  Receive Date: 20090225
  Receipt Date: 20090210
  Transmission Date: 20090719
  Serious: Yes (Other)
  Sender: FDA-Public Use
  Company Number: 090126-0000108

PATIENT
  Age: 8 Day
  Sex: Female

DRUGS (4)
  1. NEOPROFEN [Suspect]
     Indication: PATENT DUCTUS ARTERIOSUS
     Dosage: SEE IMAGE
  2. VANCOMYCIN [Concomitant]
  3. CEFOTAXIME [Concomitant]
  4. CLINDAMYCIN HCL [Concomitant]

REACTIONS (2)
  - GASTROINTESTINAL NECROSIS [None]
  - INTESTINAL PERFORATION [None]
